FAERS Safety Report 6088255-1 (Version None)
Quarter: 2009Q1

REPORT INFORMATION
  Report Type: 
  Country: None (occurrence: None)
  Receive Date: 20090224
  Receipt Date: 20090212
  Transmission Date: 20090719
  Serious: Yes (Life-Threatening, Hospitalization)
  Sender: FDA-Public Use
  Company Number: NL-BAYER-200824900GPV

PATIENT
  Age: 57 Year

DRUGS (2)
  1. FLUDARABINE PHOSPHATE [Suspect]
     Indication: CHRONIC LYMPHOCYTIC LEUKAEMIA
     Dosage: UNIT DOSE: 40 MG/M2
     Route: 048
  2. CYCLOPHOSPHAMIDE [Suspect]
     Indication: CHRONIC LYMPHOCYTIC LEUKAEMIA
     Dosage: UNIT DOSE: 250 MG/M2
     Route: 048

REACTIONS (7)
  - BRONCHOPULMONARY ASPERGILLOSIS [None]
  - DEHYDRATION [None]
  - FEBRILE NEUTROPENIA [None]
  - PSEUDOMEMBRANOUS COLITIS [None]
  - RENAL FAILURE [None]
  - SEPTIC SHOCK [None]
  - TUBULOINTERSTITIAL NEPHRITIS [None]
